FAERS Safety Report 6723516-1 (Version None)
Quarter: 2010Q2

REPORT INFORMATION
  Report Type: 
  Country: None (occurrence: None)
  Receive Date: 20100513
  Receipt Date: 20100305
  Transmission Date: 20101027
  Serious: Yes (Hospitalization)
  Sender: FDA-Public Use
  Company Number: FR-ROCHE-677577

PATIENT
  Sex: Male

DRUGS (15)
  1. ROCEPHIN [Suspect]
     Route: 042
     Dates: start: 20091031, end: 20091103
  2. BRISTOPEN [Suspect]
     Route: 048
     Dates: start: 20090918
  3. BRISTOPEN [Suspect]
     Route: 048
  4. BRISTOPEN [Suspect]
     Route: 048
     Dates: end: 20091030
  5. BRISTOPEN [Suspect]
     Route: 042
     Dates: start: 20090918, end: 20090920
  6. GENTAMICINE [Concomitant]
     Dosage: DOSE: 2 PERIODS OF ADMINISTRATION AT DIFFERENT DOSES; FREQUENCY: 2 DAYS THEN 5 DAYS
     Route: 042
     Dates: start: 20090918, end: 20091011
  7. PREVISCAN [Concomitant]
     Indication: DEEP VEIN THROMBOSIS
     Route: 048
     Dates: start: 20091006, end: 20091030
  8. TARGOCID [Concomitant]
     Dates: start: 20091105, end: 20091119
  9. TIGECYCLINE [Concomitant]
     Dates: start: 20091105, end: 20091113
  10. ECAZIDE [Concomitant]
     Route: 048
  11. ZOCOR [Concomitant]
     Indication: HYPERCHOLESTEROLAEMIA
     Route: 048
  12. ALPHAGAN [Concomitant]
     Indication: GLAUCOMA
     Route: 031
  13. RANIPLEX [Concomitant]
     Route: 048
     Dates: start: 20091009, end: 20091113
  14. BIMATOPROST AND TIMOLOL MALEATE [Concomitant]
     Indication: GLAUCOMA
     Dosage: STRENGTH: 300 UG/ML
  15. NEXIUM [Concomitant]
     Route: 048
     Dates: start: 20091103

REACTIONS (10)
  - BLOOD LACTATE DEHYDROGENASE INCREASED [None]
  - CARDIAC VALVE VEGETATION [None]
  - EOSINOPHILIA [None]
  - HAEMODIALYSIS [None]
  - NEPHRITIS ALLERGIC [None]
  - RENAL FAILURE ACUTE [None]
  - RIGHT VENTRICULAR FAILURE [None]
  - THROMBOTIC MICROANGIOPATHY [None]
  - TRANSAMINASES INCREASED [None]
  - TUBULOINTERSTITIAL NEPHRITIS [None]
